FAERS Safety Report 9353932 (Version 4)
Quarter: 2013Q4

REPORT INFORMATION
  Report Type: Spontaneous
  Country: JP (occurrence: JP)
  Receive Date: 20130618
  Receipt Date: 20131127
  Transmission Date: 20140711
  Serious: Yes (Life-Threatening, Hospitalization)
  Sender: FDA-Public Use
  Company Number: JP-PFIZER INC-2013175496

PATIENT
  Age: 2 Year
  Sex: Female
  Weight: 14 kg

DRUGS (7)
  1. ZITHROMAC [Suspect]
     Indication: NASOPHARYNGITIS
     Dosage: 1.4 G, 1X/DAY
     Route: 048
     Dates: start: 20130419, end: 20130421
  2. ALPINY [Suspect]
     Indication: NASOPHARYNGITIS
     Dosage: UNK
     Route: 054
  3. CAPTERENOL [Concomitant]
     Indication: NASOPHARYNGITIS
     Dosage: 7 ML, 2X/DAY
     Route: 048
     Dates: start: 20130419
  4. MAGOTIMIN [Concomitant]
     Indication: NASOPHARYNGITIS
     Dosage: 5 ML, 2X/DAY
     Route: 048
     Dates: start: 20130419
  5. MUCOTRON [Concomitant]
     Indication: NASOPHARYNGITIS
     Dosage: 8 ML, 3X/DAY
     Route: 048
     Dates: start: 20130419
  6. PULSMARIN A [Concomitant]
     Indication: NASOPHARYNGITIS
     Dosage: 4 ML, 3X/DAY
     Route: 048
     Dates: start: 20130419
  7. ASTOMIN [Concomitant]
     Indication: NASOPHARYNGITIS
     Dosage: 6 ML, 3X/DAY
     Route: 048
     Dates: start: 20130419

REACTIONS (1)
  - Drug reaction with eosinophilia and systemic symptoms [Recovered/Resolved]
